FAERS Safety Report 19985031 (Version 1)
Quarter: 2021Q4

REPORT INFORMATION
  Report Type: Spontaneous
  Country: US (occurrence: US)
  Receive Date: 20211020
  Receipt Date: 20211020
  Transmission Date: 20220304
  Serious: Yes (Other)
  Sender: FDA-Public Use
  Company Number: None

PATIENT
  Sex: Female

DRUGS (2)
  1. ZINC [Suspect]
     Active Substance: ZINC
  2. SKIN MD NATURAL [Suspect]
     Active Substance: HOMOSALATE\OCTINOXATE\OCTISALATE

REACTIONS (1)
  - Drug ineffective [None]
